FAERS Safety Report 9060252 (Version 1)
Quarter: 2013Q1

REPORT INFORMATION
  Report Type: Report from Study
  Country: IE (occurrence: IE)
  Receive Date: 20130211
  Receipt Date: 20130211
  Transmission Date: 20140127
  Serious: Yes (Hospitalization)
  Sender: FDA-Public Use
  Company Number: IE-GILEAD-2013-0069549

PATIENT
  Age: 71 None
  Sex: Male

DRUGS (13)
  1. BLINDED PLACEBO [Suspect]
     Indication: ANGINA PECTORIS
     Dosage: 750 MG, BID
     Route: 048
     Dates: start: 20121221
  2. RANOLAZINE [Suspect]
     Indication: ANGINA PECTORIS
     Dosage: 750 MG, BID
     Route: 048
     Dates: start: 20121221
  3. BLINDED PLACEBO [Suspect]
     Dosage: 375 MG, BID
     Route: 048
     Dates: start: 20121121, end: 20121205
  4. RANOLAZINE [Suspect]
     Dosage: 375 MG, BID
     Route: 048
     Dates: start: 20121121, end: 20121205
  5. BLINDED PLACEBO [Suspect]
     Dosage: 500 MG, BID
     Route: 048
     Dates: start: 20121206, end: 20121220
  6. RANOLAZINE [Suspect]
     Dosage: 500 MG, BID
     Route: 048
     Dates: start: 20121206, end: 20121220
  7. ASPIRIN [Concomitant]
     Indication: CORONARY ARTERY DISEASE
     Dosage: UNK
     Route: 048
     Dates: start: 2008
  8. NEBILET [Concomitant]
     Indication: CORONARY ARTERY DISEASE
     Dosage: UNK
     Route: 048
     Dates: start: 2008
  9. OMESAR [Concomitant]
     Indication: CORONARY ARTERY DISEASE
     Dosage: UNK
     Route: 048
     Dates: start: 2008
  10. NITROLINGUAL [Concomitant]
     Indication: CORONARY ARTERY DISEASE
     Dosage: UNK
     Route: 048
     Dates: start: 2008
  11. ROSUVASTATIN [Concomitant]
     Indication: CORONARY ARTERY DISEASE
     Dosage: UNK
     Route: 048
     Dates: start: 2009
  12. NEXIUM                             /01479302/ [Concomitant]
     Indication: PROPHYLAXIS AGAINST GASTROINTESTINAL ULCER
     Dosage: UNK
     Route: 048
     Dates: start: 2008
  13. ALDACTONE                          /00006201/ [Concomitant]
     Indication: HYPERTENSION
     Dosage: UNK
     Route: 048
     Dates: start: 2012

REACTIONS (1)
  - Retinal detachment [Recovering/Resolving]
